FAERS Safety Report 17062570 (Version 5)
Quarter: 2020Q1

REPORT INFORMATION
  Report Type: Spontaneous
  Country: JP (occurrence: JP)
  Receive Date: 20191122
  Receipt Date: 20200113
  Transmission Date: 20200409
  Serious: Yes (Disabling, Other)
  Sender: FDA-Public Use
  Company Number: JP-PFIZER INC-2019504258

PATIENT
  Age: 83 Year
  Sex: Female

DRUGS (7)
  1. CELECOX [Suspect]
     Active Substance: CELECOXIB
     Indication: OSTEOARTHRITIS
     Dosage: 100 MG, 2X/DAY (12 HOURS)(200 MG/DAY)
     Route: 048
     Dates: start: 20141003
  2. BONOTEO [Suspect]
     Active Substance: MINODRONIC ACID
     Indication: OSTEOPOROSIS
     Dosage: 50 MG, UNK
     Route: 048
     Dates: start: 20141003, end: 20191114
  3. LYRICA [Concomitant]
     Active Substance: PREGABALIN
     Indication: LUMBAR SPINAL STENOSIS
     Dosage: 25 MG, 2X/DAY (12H)
     Route: 048
     Dates: start: 20141006
  4. HYALONSAN [Concomitant]
     Active Substance: HYALURONATE SODIUM
     Dosage: 25 MG, 1X/DAY
     Route: 014
  5. REBAMIPIDE [Concomitant]
     Active Substance: REBAMIPIDE
     Indication: OSTEOARTHRITIS
     Dosage: 100 MG, 2X/DAY (12H)
     Route: 048
     Dates: start: 20141003
  6. LIMAPROST ALFADEX [Concomitant]
     Active Substance: LIMAPROST
     Indication: LUMBAR SPINAL STENOSIS
     Dosage: 5 UG, 3X/DAY (8H)
     Route: 048
     Dates: start: 20141003
  7. EDIROL [Concomitant]
     Active Substance: ELDECALCITOL
     Indication: OSTEOPOROSIS
     Dosage: 0.75 UG, 1X/DAY
     Route: 048
     Dates: start: 20141003

REACTIONS (1)
  - Osteonecrosis of jaw [Unknown]

NARRATIVE: CASE EVENT DATE: 20191106
